FAERS Safety Report 21241915 (Version 2)
Quarter: 2022Q3

REPORT INFORMATION
  Report Type: Spontaneous
  Country: BR (occurrence: BR)
  Receive Date: 20220823
  Receipt Date: 20220912
  Transmission Date: 20221027
  Serious: Yes (Death, Other)
  Sender: FDA-Public Use
  Company Number: BR-BoehringerIngelheim-2022-BI-187575

PATIENT
  Age: 71 Year
  Sex: Female

DRUGS (1)
  1. ALTEPLASE [Suspect]
     Active Substance: ALTEPLASE
     Indication: Ischaemic stroke
     Route: 065

REACTIONS (4)
  - Death [Fatal]
  - Laryngeal oedema [Unknown]
  - Haemorrhagic stroke [Unknown]
  - Mouth haemorrhage [Unknown]
